FAERS Safety Report 8303012-0 (Version None)
Quarter: 2012Q2

REPORT INFORMATION
  Report Type: 
  Country: None (occurrence: None)
  Receive Date: 20120421
  Receipt Date: 20120412
  Transmission Date: 20120825
  Serious: Yes (Hospitalization, Other)
  Sender: FDA-Public Use
  Company Number: JP-VERTEX PHARMACEUTICALS INC.-AE-2012-003684

PATIENT
  Age: 66 Year
  Sex: Female

DRUGS (12)
  1. TELAVIC (TELAPREVIR) [Suspect]
     Indication: HEPATITIS C
     Route: 048
     Dates: start: 20120124, end: 20120212
  2. SELBEX [Concomitant]
     Route: 048
     Dates: start: 20120125
  3. PEGINTERFERON ALFA-2B [Concomitant]
     Indication: HEPATITIS C
     Route: 051
     Dates: start: 20120124, end: 20120302
  4. VOLTAREN-XR [Concomitant]
     Route: 048
     Dates: start: 20120125
  5. MOTILIUM [Concomitant]
     Route: 048
     Dates: start: 20120223
  6. VOLTAREN [Concomitant]
     Route: 054
     Dates: start: 20120124
  7. TOUGHMAC E [Concomitant]
     Dates: start: 20120125
  8. FUNGIZONE [Concomitant]
     Route: 048
     Dates: start: 20120214
  9. TELAVIC (TELAPREVIR) [Suspect]
     Route: 048
     Dates: start: 20120213, end: 20120301
  10. RIBAVIRIN [Concomitant]
     Route: 048
     Dates: start: 20120227, end: 20120301
  11. RIBAVIRIN [Concomitant]
     Indication: HEPATITIS C
     Route: 048
     Dates: start: 20120124, end: 20120219
  12. RIBAVIRIN [Concomitant]
     Route: 048
     Dates: start: 20120220, end: 20120226

REACTIONS (2)
  - ANAEMIA [None]
  - DECREASED APPETITE [None]
